FAERS Safety Report 21271155 (Version 3)
Quarter: 2022Q4

REPORT INFORMATION
  Report Type: Spontaneous
  Country: JP (occurrence: JP)
  Receive Date: 20220830
  Receipt Date: 20221102
  Transmission Date: 20230112
  Serious: Yes (Other)
  Sender: FDA-Public Use
  Company Number: JP-ONO-2022JP023533

PATIENT
  Age: 74 Year
  Sex: Male
  Weight: 73 kg

DRUGS (8)
  1. KYPROLIS [Suspect]
     Active Substance: CARFILZOMIB
     Indication: Plasma cell myeloma
     Dosage: 56 MG/M2, DAY1,2,8,9,15,16
     Route: 041
     Dates: start: 201711, end: 201901
  2. KYPROLIS [Suspect]
     Active Substance: CARFILZOMIB
     Dosage: 56 MG/M2, DAY1,2,8,9,15,16
     Route: 041
     Dates: start: 201902, end: 201911
  3. KYPROLIS [Suspect]
     Active Substance: CARFILZOMIB
     Dosage: 56 MG/M2, DAY1,2,8,9,15,16
     Route: 041
     Dates: start: 202009, end: 202207
  4. KYPROLIS [Suspect]
     Active Substance: CARFILZOMIB
     Dosage: 56 MG/M2, TWICE MONTHLY (DAY1,15)
     Route: 041
     Dates: start: 202207
  5. DEXAMETHASONE [Concomitant]
     Active Substance: DEXAMETHASONE
     Indication: Plasma cell myeloma
     Dosage: 20 MG, DAY1,2,8,915,16
     Route: 065
     Dates: start: 201711, end: 201901
  6. DEXAMETHASONE [Concomitant]
     Active Substance: DEXAMETHASONE
     Dosage: 20 MG, DAY1,2,8,9,15,16
     Route: 065
     Dates: start: 201902, end: 201911
  7. DEXAMETHASONE [Concomitant]
     Active Substance: DEXAMETHASONE
     Dosage: 20 MG, DAY1,2,8,9,15,16
     Route: 065
     Dates: start: 202009, end: 202207
  8. DEXAMETHASONE [Concomitant]
     Active Substance: DEXAMETHASONE
     Dosage: 20 MG, DAY1,8,15
     Route: 065
     Dates: start: 202207

REACTIONS (3)
  - Pneumonia bacterial [Recovered/Resolved]
  - Osteomyelitis [Recovered/Resolved]
  - Escherichia bacteraemia [Recovered/Resolved]

NARRATIVE: CASE EVENT DATE: 20190101
